FAERS Safety Report 17859051 (Version 1)
Quarter: 2020Q2

REPORT INFORMATION
  Report Type: Spontaneous
  Country: TR (occurrence: TR)
  Receive Date: 20200604
  Receipt Date: 20200604
  Transmission Date: 20200714
  Serious: No
  Sender: FDA-Public Use
  Company Number: TR-TOLMAR, INC.-19TR000690

PATIENT
  Age: 61 Year
  Sex: Male

DRUGS (1)
  1. ELIGARD [Suspect]
     Active Substance: LEUPROLIDE ACETATE
     Indication: PRODUCT USED FOR UNKNOWN INDICATION
     Dosage: 45 MG Q 6 MONTHS
     Route: 058
     Dates: start: 20180507

REACTIONS (5)
  - Product leakage [Unknown]
  - Underdose [Unknown]
  - Drug ineffective [Unknown]
  - Intercepted product administration error [Unknown]
  - Product preparation error [Unknown]

NARRATIVE: CASE EVENT DATE: 20181003
